FAERS Safety Report 17409676 (Version 6)
Quarter: 2020Q2

REPORT INFORMATION
  Report Type: Report from Study
  Country: US (occurrence: US)
  Receive Date: 20200212
  Receipt Date: 20200609
  Transmission Date: 20200713
  Serious: Yes (Other)
  Sender: FDA-Public Use
  Company Number: NVSC2020US024009

PATIENT
  Sex: Female

DRUGS (1)
  1. ENTRESTO [Suspect]
     Active Substance: SACUBITRIL\VALSARTAN
     Indication: PRODUCT USED FOR UNKNOWN INDICATION
     Dosage: UNK
     Route: 048
     Dates: start: 201906

REACTIONS (9)
  - Upper limb fracture [Unknown]
  - Pain [Unknown]
  - Arthralgia [Unknown]
  - Inflammation [Unknown]
  - Dyspnoea [Unknown]
  - Cough [Unknown]
  - Fall [Unknown]
  - Rheumatoid arthritis [Unknown]
  - Hot flush [Unknown]
